FAERS Safety Report 6977184-4 (Version None)
Quarter: 2010Q3

REPORT INFORMATION
  Report Type: 
  Country: None (occurrence: None)
  Receive Date: 20100910
  Receipt Date: 20100901
  Transmission Date: 20110219
  Serious: No
  Sender: FDA-Public Use
  Company Number: US-PFIZER INC-2010112696

PATIENT
  Sex: Female

DRUGS (3)
  1. GEODON [Suspect]
     Dosage: UNK
  2. EFFEXOR [Suspect]
     Dosage: UNK
     Dates: start: 20040101, end: 20100831
  3. SEROQUEL [Concomitant]
     Dosage: UNK

REACTIONS (2)
  - MUSCLE TWITCHING [None]
  - MYALGIA [None]
